FAERS Safety Report 25178129 (Version 1)
Quarter: 2025Q2

REPORT INFORMATION
  Report Type: Spontaneous
  Country: US (occurrence: None)
  Receive Date: 20250408
  Receipt Date: 20250408
  Transmission Date: 20250716
  Serious: Yes (Disabling, Other)
  Sender: FDA-CTU
  Company Number: None

PATIENT
  Age: 47 Year
  Sex: Female
  Weight: 54 kg

DRUGS (6)
  1. AIMOVIG [Suspect]
     Active Substance: ERENUMAB-AOOE
     Indication: Migraine
     Route: 050
     Dates: start: 20240601, end: 20240701
  2. AMITRIPTYLINE [Concomitant]
     Active Substance: AMITRIPTYLINE
  3. FLONASE [Concomitant]
     Active Substance: FLUTICASONE PROPIONATE
  4. MINOXIDIL [Concomitant]
     Active Substance: MINOXIDIL
  5. BIOTIN [Concomitant]
     Active Substance: BIOTIN
  6. ROGAINE [Concomitant]
     Active Substance: MINOXIDIL

REACTIONS (4)
  - Alopecia [None]
  - Depression [None]
  - Loss of employment [None]
  - Social problem [None]

NARRATIVE: CASE EVENT DATE: 20240601
